FAERS Safety Report 17809962 (Version 1)
Quarter: 2020Q2

REPORT INFORMATION
  Report Type: Spontaneous
  Country: CA (occurrence: CA)
  Receive Date: 20200521
  Receipt Date: 20200521
  Transmission Date: 20200714
  Serious: Yes (Other)
  Sender: FDA-Public Use
  Company Number: CA-ROCHE-2599552

PATIENT
  Age: 33 Year
  Sex: Male
  Weight: 81 kg

DRUGS (9)
  1. METHYLPREDNISOLONE SODIUM SUCCINATE. [Suspect]
     Active Substance: METHYLPREDNISOLONE SODIUM SUCCINATE
     Indication: RHEUMATOID ARTHRITIS
     Route: 042
  2. HOMATROPINE HYDROBROMIDE. [Concomitant]
     Active Substance: HOMATROPINE HYDROBROMIDE
  3. RITUXIMAB. [Suspect]
     Active Substance: RITUXIMAB
     Indication: RHEUMATOID ARTHRITIS
     Route: 041
  4. PREDNISOLONE ACETATE. [Concomitant]
     Active Substance: PREDNISOLONE ACETATE
     Dosage: OPTHALMIC
     Route: 065
  5. METHOTREXATE. [Concomitant]
     Active Substance: METHOTREXATE
     Route: 048
  6. ACTEMRA [Suspect]
     Active Substance: TOCILIZUMAB
     Indication: RHEUMATOID ARTHRITIS
     Route: 042
  7. CELEBREX [Concomitant]
     Active Substance: CELECOXIB
     Route: 065
  8. ACETAMINOPHEN. [Concomitant]
     Active Substance: ACETAMINOPHEN
     Indication: PREMEDICATION
     Route: 048
  9. FOLIC ACID. [Concomitant]
     Active Substance: FOLIC ACID

REACTIONS (6)
  - Infusion related reaction [Recovered/Resolved]
  - Drug ineffective [Recovered/Resolved]
  - Heart rate decreased [Recovered/Resolved]
  - Weight decreased [Recovered/Resolved]
  - Anger [Recovered/Resolved]
  - Stress [Recovered/Resolved]
